FAERS Safety Report 9350021 (Version 1)
Quarter: 2013Q2

REPORT INFORMATION
  Report Type: Report from Study
  Country: FR (occurrence: FR)
  Receive Date: 20130615
  Receipt Date: 20130615
  Transmission Date: 20140414
  Serious: Yes (Death)
  Sender: FDA-Public Use
  Company Number: FR-ROCHE-GNE265191

PATIENT
  Age: 69 Year
  Sex: Male

DRUGS (3)
  1. ALTEPLASE [Suspect]
     Indication: BASILAR ARTERY THROMBOSIS
     Dosage: 20 MG, UNK
     Route: 013
  2. HEPARIN [Suspect]
     Indication: BASILAR ARTERY THROMBOSIS
     Dosage: 50 IU/KG, UNK
     Route: 042
  3. HEPARIN [Suspect]
     Dosage: 200 IU/KG, UNK
     Route: 042

REACTIONS (1)
  - Death [Fatal]
